FAERS Safety Report 24577951 (Version 1)
Quarter: 2024Q4

REPORT INFORMATION
  Report Type: Spontaneous
  Country: US (occurrence: US)
  Receive Date: 20241104
  Receipt Date: 20241104
  Transmission Date: 20250114
  Serious: Yes (Other)
  Sender: ABBVIE
  Company Number: US-ABBVIE-5984758

PATIENT
  Age: 35 Year

DRUGS (1)
  1. LUPRON DEPOT [Suspect]
     Active Substance: LEUPROLIDE ACETATE
     Indication: Endometriosis
     Dosage: 3.75MG
     Route: 065
     Dates: start: 1998

REACTIONS (3)
  - Gastric neuroendocrine carcinoma [Not Recovered/Not Resolved]
  - Gastrointestinal disorder [Unknown]
  - Idiopathic pancreatitis [Unknown]

NARRATIVE: CASE EVENT DATE: 20130101
